FAERS Safety Report 11882409 (Version 1)
Quarter: 2015Q4

REPORT INFORMATION
  Report Type: Spontaneous
  Country: US (occurrence: None)
  Receive Date: 20151230
  Receipt Date: 20151230
  Transmission Date: 20160305
  Serious: No
  Sender: FDA-Public Use
  Company Number: None

PATIENT
  Age: 42 Year

DRUGS (4)
  1. TASIGNA [Suspect]
     Active Substance: NILOTINIB
     Indication: NEOPLASM MALIGNANT
     Route: 048
     Dates: start: 201508
  2. BENADRYL [Concomitant]
     Active Substance: DIPHENHYDRAMINE HYDROCHLORIDE
  3. NASONEX [Concomitant]
     Active Substance: MOMETASONE FUROATE
  4. ALBUTEROL. [Concomitant]
     Active Substance: ALBUTEROL

REACTIONS (5)
  - Headache [None]
  - Alopecia [None]
  - Pruritus [None]
  - Folliculitis [None]
  - Fatigue [None]

NARRATIVE: CASE EVENT DATE: 201508
